FAERS Safety Report 13682552 (Version 2)
Quarter: 2017Q2

REPORT INFORMATION
  Report Type: Report from Study
  Country: JP (occurrence: JP)
  Receive Date: 20170623
  Receipt Date: 20170629
  Transmission Date: 20170830
  Serious: Yes (Other)
  Sender: FDA-Public Use
  Company Number: JP-JNJFOC-20170620221

PATIENT
  Age: 35 Year
  Sex: Male
  Weight: 63 kg

DRUGS (9)
  1. YONDELIS [Suspect]
     Active Substance: TRABECTEDIN
     Indication: DESMOPLASTIC SMALL ROUND CELL TUMOUR
     Route: 042
     Dates: start: 20170504
  2. YONDELIS [Suspect]
     Active Substance: TRABECTEDIN
     Indication: DESMOPLASTIC SMALL ROUND CELL TUMOUR
     Route: 042
     Dates: start: 20170201
  3. YONDELIS [Suspect]
     Active Substance: TRABECTEDIN
     Indication: DESMOPLASTIC SMALL ROUND CELL TUMOUR
     Route: 042
     Dates: start: 20170413
  4. YONDELIS [Suspect]
     Active Substance: TRABECTEDIN
     Indication: DESMOPLASTIC SMALL ROUND CELL TUMOUR
     Route: 042
     Dates: start: 20161213
  5. YONDELIS [Suspect]
     Active Substance: TRABECTEDIN
     Indication: DESMOPLASTIC SMALL ROUND CELL TUMOUR
     Route: 042
     Dates: start: 20170223
  6. YONDELIS [Suspect]
     Active Substance: TRABECTEDIN
     Indication: DESMOPLASTIC SMALL ROUND CELL TUMOUR
     Route: 042
     Dates: start: 20170322
  7. YONDELIS [Suspect]
     Active Substance: TRABECTEDIN
     Indication: DESMOPLASTIC SMALL ROUND CELL TUMOUR
     Dosage: 24-HOUR INFUSION
     Route: 042
     Dates: start: 20161122
  8. YONDELIS [Suspect]
     Active Substance: TRABECTEDIN
     Indication: DESMOPLASTIC SMALL ROUND CELL TUMOUR
     Route: 042
     Dates: start: 20170106
  9. DEXAMETHASONE. [Concomitant]
     Active Substance: DEXAMETHASONE
     Route: 065
     Dates: start: 20161122

REACTIONS (4)
  - Alanine aminotransferase increased [Recovered/Resolved]
  - Aspartate aminotransferase increased [Recovered/Resolved]
  - Gamma-glutamyltransferase increased [Recovering/Resolving]
  - Platelet count decreased [Recovered/Resolved]

NARRATIVE: CASE EVENT DATE: 20161124
